FAERS Safety Report 20247372 (Version 3)
Quarter: 2022Q2

REPORT INFORMATION
  Report Type: Spontaneous
  Country: IT (occurrence: IT)
  Receive Date: 20211229
  Receipt Date: 20220404
  Transmission Date: 20220720
  Serious: No
  Sender: FDA-Public Use
  Company Number: IT-CELLTRION HEALTHCARE HUNGARY KFT-2021IT017320

PATIENT

DRUGS (3)
  1. REMICADE [Suspect]
     Active Substance: INFLIXIMAB
     Indication: Inflammatory bowel disease
     Route: 042
  2. PAMIDRONATE [Concomitant]
     Active Substance: PAMIDRONATE DISODIUM
     Indication: Product used for unknown indication
     Dosage: 1 MG/KG/DAY FOR 3 DAYS
     Route: 042
  3. ADALIMUMAB [Concomitant]
     Active Substance: ADALIMUMAB
     Indication: Inflammatory bowel disease
     Dosage: 40 MG, Q2WEEKS
     Route: 065

REACTIONS (1)
  - Psoriasis [Unknown]
